FAERS Safety Report 4823221-2 (Version None)
Quarter: 2005Q4

REPORT INFORMATION
  Report Type: 
  Country: None (occurrence: None)
  Receive Date: 20051108
  Receipt Date: 20051108
  Transmission Date: 20060501
  Serious: Yes (Hospitalization)
  Sender: FDA-Public Use
  Company Number: None

PATIENT
  Sex: Male
  Weight: 85.7298 kg

DRUGS (10)
  1. REVLIMID [Suspect]
     Indication: MULTIPLE MYELOMA
     Dosage: 25 MG, ONCE/DAY, PO
     Route: 048
     Dates: start: 20050430
  2. BIAXIN [Suspect]
     Indication: MULTIPLE MYELOMA
     Dosage: 500 MG, PO
     Route: 048
     Dates: start: 20050430
  3. DEXAMETHASONE TAB [Suspect]
     Indication: MULTIPLE MYELOMA
     Dosage: 40MG PO
     Route: 048
     Dates: start: 20050430
  4. SENNA [Concomitant]
  5. COLACE [Concomitant]
  6. MIRALAX [Concomitant]
  7. ASPIRIN [Concomitant]
  8. ACYCLOVIR [Concomitant]
  9. AUGMENTIN '125' [Concomitant]
  10. BACTRAN BS [Concomitant]

REACTIONS (6)
  - ABDOMINAL PAIN [None]
  - CONSTIPATION [None]
  - NAUSEA [None]
  - PYREXIA [None]
  - RASH [None]
  - VOMITING [None]
